FAERS Safety Report 9780753 (Version 1)
Quarter: 2013Q4

REPORT INFORMATION
  Report Type: Report from Study
  Country: AR (occurrence: AR)
  Receive Date: 20131224
  Receipt Date: 20131224
  Transmission Date: 20140711
  Serious: Yes (Other)
  Sender: FDA-Public Use
  Company Number: PHHY2013AR150451

PATIENT
  Sex: Male

DRUGS (1)
  1. DIOVAN D [Suspect]
     Dosage: (160 MG VLS AND UNK MG HYDR)
     Route: 048

REACTIONS (1)
  - Diabetes mellitus [Unknown]
